FAERS Safety Report 10638724 (Version 1)
Quarter: 2014Q4

REPORT INFORMATION
  Report Type: Spontaneous
  Country: US (occurrence: None)
  Receive Date: 20141121
  Receipt Date: 20141121
  Transmission Date: 20150529
  Serious: No
  Sender: FDA-Public Use
  Company Number: 163-10004-14090356

PATIENT
  Age: 60 Year
  Sex: Male

DRUGS (3)
  1. ACITRETIN (ACITRETIN) [Concomitant]
     Active Substance: ACITRETIN
  2. OTEZLA [Suspect]
     Active Substance: APREMILAST
     Indication: PSORIATIC ARTHROPATHY
     Dosage: 60 MG, 2 IN 1 D, PO
     Route: 048
  3. STELARA [Concomitant]
     Active Substance: USTEKINUMAB

REACTIONS (2)
  - Night sweats [None]
  - Abdominal pain [None]
